FAERS Safety Report 4414636-5 (Version None)
Quarter: 2004Q3

REPORT INFORMATION
  Report Type: 
  Country: None (occurrence: None)
  Receive Date: 20040729
  Receipt Date: 20040722
  Transmission Date: 20050211
  Serious: Yes (Hospitalization)
  Sender: FDA-Public Use
  Company Number: OSCN-NO-0407S-0195

PATIENT
  Age: 54 Year
  Sex: Male

DRUGS (1)
  1. OMNISCAN [Suspect]
     Dosage: 15 ML, SINGLE DOSE, I.V.
     Route: 042
     Dates: start: 20040616, end: 20040616

REACTIONS (4)
  - ALANINE AMINOTRANSFERASE INCREASED [None]
  - ASPARTATE AMINOTRANSFERASE INCREASED [None]
  - DEPRESSED LEVEL OF CONSCIOUSNESS [None]
  - LIVER FUNCTION TEST ABNORMAL [None]
